FAERS Safety Report 4818069-9 (Version None)
Quarter: 2005Q4

REPORT INFORMATION
  Report Type: 
  Country: None (occurrence: None)
  Receive Date: 20051102
  Receipt Date: 20021118
  Transmission Date: 20060501
  Serious: Yes (Hospitalization)
  Sender: FDA-Public Use
  Company Number: US-GLAXOSMITHKLINE-A0386752A

PATIENT
  Sex: Female

DRUGS (9)
  1. ADVAIR DISKUS 100/50 [Suspect]
     Dosage: 1PUFF TWICE PER DAY
     Route: 055
  2. PREDNISONE [Concomitant]
  3. DURAGESIC-100 [Concomitant]
  4. CELEBREX [Concomitant]
  5. RISPERDAL [Concomitant]
  6. TOPAMAX [Concomitant]
  7. PREVACID [Concomitant]
  8. HYDROMORPHONE [Concomitant]
  9. RITALIN [Concomitant]

REACTIONS (5)
  - ASTHMA [None]
  - COMA [None]
  - DRUG INEFFECTIVE [None]
  - DYSPNOEA [None]
  - PHARMACEUTICAL PRODUCT COMPLAINT [None]
